FAERS Safety Report 6527128-4 (Version None)
Quarter: 2010Q1

REPORT INFORMATION
  Report Type: 
  Country: None (occurrence: None)
  Receive Date: 20100105
  Receipt Date: 20091231
  Transmission Date: 20100710
  Serious: Yes (Life-Threatening, Hospitalization, Other)
  Sender: FDA-Public Use
  Company Number: US-ELI_LILLY_AND_COMPANY-US200910001641

PATIENT
  Age: 77 Year
  Sex: Female

DRUGS (9)
  1. GEMZAR [Suspect]
     Indication: NON-HODGKIN'S LYMPHOMA
     Dosage: 1590 MG, OTHER
     Dates: end: 20090101
  2. RITUXAN [Concomitant]
     Indication: NON-HODGKIN'S LYMPHOMA
     Dates: end: 20090101
  3. OXALIPLATIN [Concomitant]
     Indication: NON-HODGKIN'S LYMPHOMA
  4. DEXAMETHASONE [Concomitant]
  5. MULTI-VITAMIN [Concomitant]
  6. FISH OIL [Concomitant]
  7. HYDROCODONE [Concomitant]
     Dosage: UNK, AS NEEDED
  8. LISINOPRIL [Concomitant]
     Dosage: 5 MG, DAILY (1/D)
  9. ANZEMET [Concomitant]
     Indication: ANTIEMETIC SUPPORTIVE CARE

REACTIONS (5)
  - ASPARTATE AMINOTRANSFERASE INCREASED [None]
  - BLOOD ALKALINE PHOSPHATASE INCREASED [None]
  - CARDIAC ARREST [None]
  - MYOCARDIAL INFARCTION [None]
  - OFF LABEL USE [None]
